FAERS Safety Report 10463767 (Version 1)
Quarter: 2014Q3

REPORT INFORMATION
  Report Type: Spontaneous
  Country: US (occurrence: None)
  Receive Date: 20140918
  Receipt Date: 20140918
  Transmission Date: 20150326
  Serious: Yes (Disabling)
  Sender: FDA-Public Use
  Company Number: None

PATIENT
  Age: 58 Year
  Sex: Female
  Weight: 63.5 kg

DRUGS (1)
  1. AMPHETAMINES [Suspect]
     Active Substance: AMPHETAMINE
     Indication: ATTENTION DEFICIT/HYPERACTIVITY DISORDER
     Dosage: 1.5?ONCE DAILY?TAKEN BY MOUTH
     Route: 048

REACTIONS (5)
  - Hypoaesthesia [None]
  - Condition aggravated [None]
  - Neuralgia [None]
  - Facial pain [None]
  - Pain in extremity [None]

NARRATIVE: CASE EVENT DATE: 20140428
